FAERS Safety Report 14526109 (Version 5)
Quarter: 2018Q2

REPORT INFORMATION
  Report Type: Report from Study
  Country: US (occurrence: US)
  Receive Date: 20180213
  Receipt Date: 20180626
  Transmission Date: 20180711
  Serious: No
  Sender: FDA-Public Use
  Company Number: PHEH2018US005825

PATIENT
  Age: 71 Year
  Sex: Female
  Weight: 61.22 kg

DRUGS (1)
  1. GLATOPA [Suspect]
     Active Substance: GLATIRAMER ACETATE
     Indication: MULTIPLE SCLEROSIS
     Dosage: 20 MG, ROTATES SITES
     Route: 058

REACTIONS (6)
  - Injection site mass [Not Recovered/Not Resolved]
  - Device leakage [Unknown]
  - Injection site swelling [Not Recovered/Not Resolved]
  - Injection site pruritus [Not Recovered/Not Resolved]
  - Injection site bruising [Not Recovered/Not Resolved]
  - Device malfunction [Unknown]

NARRATIVE: CASE EVENT DATE: 20171106
